FAERS Safety Report 10208152 (Version 1)
Quarter: 2014Q2

REPORT INFORMATION
  Report Type: Spontaneous
  Country: US (occurrence: US)
  Receive Date: 20140530
  Receipt Date: 20140530
  Transmission Date: 20141212
  Serious: Yes (Other)
  Sender: FDA-Public Use
  Company Number: US-NAPPMUNDI-USA-2013-0105231

PATIENT
  Sex: Male

DRUGS (4)
  1. MORPHINE SULFATE (SIMILAR TO NDA 19-516) [Suspect]
     Indication: DRUG ABUSE
  2. OXYCODONE HYDROCHLORIDE (SIMILAR TO NDA 22-272) [Suspect]
     Indication: DRUG ABUSE
  3. ZOLPIDEM TARTRATE [Suspect]
     Indication: DRUG ABUSE
  4. HYDROCODONE [Suspect]
     Indication: DRUG ABUSE

REACTIONS (1)
  - Drug abuse [Unknown]
